FAERS Safety Report 19449739 (Version 1)
Quarter: 2021Q2

REPORT INFORMATION
  Report Type: Spontaneous
  Country: DE (occurrence: DE)
  Receive Date: 20210622
  Receipt Date: 20210622
  Transmission Date: 20210717
  Serious: Yes (Life-Threatening, Other)
  Sender: FDA-Public Use
  Company Number: DE-PBT-000444

PATIENT
  Age: 14 Year

DRUGS (9)
  1. CICLOSPORIN [Suspect]
     Active Substance: CYCLOSPORINE
     Indication: PROPHYLAXIS AGAINST GRAFT VERSUS HOST DISEASE
     Dosage: UNKNOWN
     Route: 065
  2. THIOTEPA. [Suspect]
     Active Substance: THIOTEPA
     Indication: ALLOGENIC STEM CELL TRANSPLANTATION
     Dosage: 10 MILLIGRAM/KILOGRAM, QD (DAY ?3
     Route: 065
  3. FLUDARABINE [Suspect]
     Active Substance: FLUDARABINE PHOSPHATE
     Indication: ALLOGENIC STEM CELL TRANSPLANTATION
     Dosage: 40 MILLIGRAM/SQ. METER, QD (DAY ?7 TO ?4)
     Route: 065
  4. SIROLIMUS. [Suspect]
     Active Substance: SIROLIMUS
     Indication: IMMUNOSUPPRESSANT DRUG THERAPY
     Dosage: UNKNOWN
     Route: 065
  5. RUXOLITINIB [Suspect]
     Active Substance: RUXOLITINIB
     Indication: IMMUNOSUPPRESSANT DRUG THERAPY
     Dosage: UNKNOWN
     Route: 065
  6. PREDNISONE. [Suspect]
     Active Substance: PREDNISONE
     Indication: IMMUNOSUPPRESSANT DRUG THERAPY
     Dosage: UNKNOWN
     Route: 065
  7. MYCOPHENOLATE MOFETIL. [Suspect]
     Active Substance: MYCOPHENOLATE MOFETIL
     Indication: PROPHYLAXIS AGAINST GRAFT VERSUS HOST DISEASE
     Dosage: UNKNOWN
     Route: 065
  8. TACROLIMUS MONOHYDRATE [Suspect]
     Active Substance: TACROLIMUS
     Indication: IMMUNOSUPPRESSANT DRUG THERAPY
     Dosage: UNKNOWN
     Route: 065
  9. MELPHALAN. [Suspect]
     Active Substance: MELPHALAN
     Indication: ALLOGENIC STEM CELL TRANSPLANTATION
     Dosage: 160 MILLIGRAM/SQ. METER, QD (DAY ?2)
     Route: 065

REACTIONS (4)
  - Acute graft versus host disease in intestine [Recovered/Resolved]
  - Drug ineffective [Unknown]
  - Product use issue [Unknown]
  - Off label use [Unknown]
